FAERS Safety Report 20810345 (Version 1)
Quarter: 2022Q2

REPORT INFORMATION
  Report Type: Report from Study
  Country: US (occurrence: None)
  Receive Date: 20220510
  Receipt Date: 20220510
  Transmission Date: 20220721
  Serious: Yes (Hospitalization)
  Sender: FDA-Public Use
  Company Number: 2022A173250

PATIENT
  Age: 77 Year
  Sex: Female

DRUGS (2)
  1. BRILINTA [Suspect]
     Active Substance: TICAGRELOR
     Indication: Atrial fibrillation
     Route: 048
  2. BRILINTA [Suspect]
     Active Substance: TICAGRELOR
     Indication: Pacemaker syndrome
     Route: 048

REACTIONS (3)
  - Fall [Recovering/Resolving]
  - Face injury [Recovering/Resolving]
  - Neck injury [Recovering/Resolving]

NARRATIVE: CASE EVENT DATE: 20220425
